FAERS Safety Report 21350210 (Version 1)
Quarter: 2022Q3

REPORT INFORMATION
  Report Type: Spontaneous
  Country: US (occurrence: None)
  Receive Date: 20220918
  Receipt Date: 20220918
  Transmission Date: 20221026
  Serious: Yes (Disabling)
  Sender: FDA-Public Use
  Company Number: None

PATIENT
  Age: 76 Year
  Sex: Female

DRUGS (8)
  1. PRALUENT [Suspect]
     Active Substance: ALIROCUMAB
     Dosage: OTHER FREQUENCY : EVERY 2 WEEKS;?OTHER ROUTE : INJECTION IN DIFFERENT PLACE EACH TIME;?
     Route: 050
     Dates: start: 20210509, end: 20220917
  2. metoperol [Concomitant]
  3. enteric asperin [Concomitant]
  4. FUROSEMIDE [Concomitant]
     Active Substance: FUROSEMIDE
  5. LEVOTHYROXINE [Concomitant]
     Active Substance: LEVOTHYROXINE
  6. CALCIUM [Concomitant]
     Active Substance: CALCIUM
  7. VITAMIN D [Concomitant]
     Active Substance: VITAMIN D NOS
  8. Osteobiflex [Concomitant]

REACTIONS (9)
  - Muscle spasms [None]
  - Blood cholesterol increased [None]
  - Arterial occlusive disease [None]
  - Paraesthesia [None]
  - Hypoaesthesia [None]
  - Plantar fasciitis [None]
  - Oedema peripheral [None]
  - Blood pressure decreased [None]
  - Joint swelling [None]
